FAERS Safety Report 21200874 (Version 1)
Quarter: 2022Q3

REPORT INFORMATION
  Report Type: Spontaneous
  Country: US (occurrence: None)
  Receive Date: 20220810
  Receipt Date: 20220810
  Transmission Date: 20221027
  Serious: Yes (Hospitalization)
  Sender: FDA-Public Use
  Company Number: None

PATIENT
  Age: 41 Year
  Sex: Female

DRUGS (1)
  1. BENLYSTA [Suspect]
     Active Substance: BELIMUMAB
     Indication: Cardiac disorder
     Route: 058
     Dates: start: 20200211

REACTIONS (2)
  - Therapy interrupted [None]
  - Heart valve replacement [None]

NARRATIVE: CASE EVENT DATE: 20220801
